FAERS Safety Report 5116589-3 (Version None)
Quarter: 2006Q3

REPORT INFORMATION
  Report Type: 
  Country: None (occurrence: None)
  Receive Date: 20060928
  Receipt Date: 20060924
  Transmission Date: 20061208
  Serious: Yes (Hospitalization)
  Sender: FDA-Public Use
  Company Number: GB-GLAXOSMITHKLINE-B0439356A

PATIENT
  Sex: Male

DRUGS (1)
  1. NIQUITIN CQ PATCH, CLEAR [Suspect]
     Dosage: 21MG PER DAY
     Route: 062
     Dates: start: 20060921, end: 20060924

REACTIONS (1)
  - VOMITING [None]
